FAERS Safety Report 10573468 (Version 3)
Quarter: 2014Q4

REPORT INFORMATION
  Report Type: Report from Study
  Country: DE (occurrence: DE)
  Receive Date: 20141110
  Receipt Date: 20141114
  Transmission Date: 20150529
  Serious: Yes (Hospitalization)
  Sender: FDA-Public Use
  Company Number: DE-SANOFI-AVENTIS-2012SA027507

PATIENT
  Age: 68 Year
  Sex: Male
  Weight: 81.5 kg

DRUGS (8)
  1. JEVTANA [Suspect]
     Active Substance: CABAZITAXEL
     Indication: PROSTATE CANCER METASTATIC
     Route: 051
     Dates: start: 20120313, end: 20120313
  2. HELIXOR [Concomitant]
     Route: 058
  3. SELENIUM [Concomitant]
     Active Substance: SELENIUM
     Route: 048
  4. JEVTANA [Suspect]
     Active Substance: CABAZITAXEL
     Indication: PROSTATE CANCER METASTATIC
     Route: 051
     Dates: start: 20120221, end: 20120221
  5. ENZYME PREPARATIONS [Concomitant]
     Route: 065
  6. FLUTAMIDE. [Concomitant]
     Active Substance: FLUTAMIDE
     Indication: PROSTATE CANCER
     Route: 065
  7. PREDNISOLON [Concomitant]
     Active Substance: PREDNISOLONE
     Indication: PROSTATE CANCER
     Route: 065
  8. TRENANTONE [Concomitant]
     Active Substance: LEUPROLIDE ACETATE
     Route: 065

REACTIONS (6)
  - Bone marrow failure [Recovered/Resolved]
  - Pneumonitis [Recovered/Resolved]
  - Leukopenia [Recovered/Resolved]
  - General physical health deterioration [Recovered/Resolved]
  - Cough [Recovered/Resolved]
  - Fatigue [Recovered/Resolved]

NARRATIVE: CASE EVENT DATE: 20120326
